FAERS Safety Report 17250602 (Version 1)
Quarter: 2020Q1

REPORT INFORMATION
  Report Type: Spontaneous
  Country: IN (occurrence: IN)
  Receive Date: 20200109
  Receipt Date: 20200109
  Transmission Date: 20200409
  Serious: No
  Sender: FDA-Public Use
  Company Number: IN-ALKEM LABORATORIES LIMITED-IN-ALKEM-2019-08701

PATIENT
  Age: 37 Year
  Sex: Female
  Weight: 71 kg

DRUGS (1)
  1. ITRATUF 200 CAPSULES [Suspect]
     Active Substance: ITRACONAZOLE
     Indication: PRODUCT USED FOR UNKNOWN INDICATION
     Dosage: 1 DOSAGE FORM, OD
     Route: 065
     Dates: start: 20190523

REACTIONS (1)
  - Exposure during pregnancy [Unknown]
